FAERS Safety Report 6558880-X (Version None)
Quarter: 2010Q1

REPORT INFORMATION
  Report Type: 
  Country: None (occurrence: None)
  Receive Date: 20100129
  Receipt Date: 20100121
  Transmission Date: 20100710
  Serious: Yes (Other)
  Sender: FDA-Public Use
  Company Number: IT-SANOFI-AVENTIS-2010SA003635

PATIENT
  Age: 67 Year
  Sex: Female

DRUGS (8)
  1. TAXOTERE [Suspect]
     Route: 048
     Dates: start: 20091119, end: 20091119
  2. DEXIBUPROFEN [Concomitant]
     Route: 048
  3. SACCHARATED IRON OXIDE [Concomitant]
     Route: 048
  4. DEXAMETHASONE [Concomitant]
     Indication: PREMEDICATION
     Route: 042
  5. OMEPRAZOLE [Concomitant]
     Route: 048
  6. ONDANSETRON [Concomitant]
     Route: 042
  7. ARANESP [Concomitant]
     Route: 058
  8. TRIMETON [Concomitant]
     Indication: PREMEDICATION
     Route: 042

REACTIONS (3)
  - DYSPNOEA [None]
  - FACE OEDEMA [None]
  - OXYGEN SATURATION DECREASED [None]
